FAERS Safety Report 4742882-X (Version None)
Quarter: 2005Q3

REPORT INFORMATION
  Report Type: 
  Country: None (occurrence: None)
  Receive Date: 20050811
  Receipt Date: 20050329
  Transmission Date: 20060218
  Serious: Yes (Hospitalization)
  Sender: FDA-Public Use
  Company Number: PHHO2005AR05390

PATIENT
  Age: 32 Year
  Sex: Female

DRUGS (1)
  1. GLEEVEC [Suspect]
     Indication: CHRONIC MYELOID LEUKAEMIA
     Dosage: 600 - 800 MG DAILY
     Route: 048

REACTIONS (4)
  - BONE PAIN [None]
  - FOOD INTOLERANCE [None]
  - MALIGNANT NEOPLASM PROGRESSION [None]
  - OEDEMA [None]
